FAERS Safety Report 18583013 (Version 2)
Quarter: 2021Q2

REPORT INFORMATION
  Report Type: Report from Study
  Country: US (occurrence: US)
  Receive Date: 20201206
  Receipt Date: 20210524
  Transmission Date: 20210717
  Serious: No
  Sender: FDA-Public Use
  Company Number: NVSC2020US321240

PATIENT
  Age: 53 Year
  Sex: Male

DRUGS (1)
  1. KYMRIAH [Suspect]
     Active Substance: TISAGENLECLEUCEL
     Indication: DIFFUSE LARGE B-CELL LYMPHOMA
     Dosage: UNK, ONCE/SINGLE
     Route: 042
     Dates: start: 20200317, end: 20200317

REACTIONS (5)
  - Pyrexia [Unknown]
  - Dizziness [Unknown]
  - Memory impairment [Unknown]
  - Adverse drug reaction [Unknown]
  - Parosmia [Unknown]

NARRATIVE: CASE EVENT DATE: 202003
